FAERS Safety Report 6970811-7 (Version None)
Quarter: 2010Q3

REPORT INFORMATION
  Report Type: 
  Country: None (occurrence: None)
  Receive Date: 20100908
  Receipt Date: 20100901
  Transmission Date: 20110219
  Serious: Yes (Hospitalization)
  Sender: FDA-Public Use
  Company Number: A0879656A

PATIENT
  Age: 62 Year
  Sex: Male
  Weight: 72.5 kg

DRUGS (5)
  1. ADVAIR DISKUS 100/50 [Suspect]
     Indication: CHRONIC OBSTRUCTIVE PULMONARY DISEASE
     Route: 055
  2. CHANTIX [Suspect]
     Indication: SMOKING CESSATION THERAPY
     Dosage: .5MG PER DAY
     Route: 048
     Dates: start: 20100101, end: 20100801
  3. VENTOLIN [Concomitant]
  4. LISINOPRIL [Concomitant]
  5. OXYGEN [Concomitant]

REACTIONS (8)
  - CHRONIC OBSTRUCTIVE PULMONARY DISEASE [None]
  - DRUG ADMINISTRATION ERROR [None]
  - INSOMNIA [None]
  - NERVOUSNESS [None]
  - NICOTINE DEPENDENCE [None]
  - OROPHARYNGEAL PLAQUE [None]
  - PANIC REACTION [None]
  - STOMATITIS [None]
